FAERS Safety Report 5235480-5 (Version None)
Quarter: 2007Q1

REPORT INFORMATION
  Report Type: 
  Country: None (occurrence: None)
  Receive Date: 20070212
  Receipt Date: 20070130
  Transmission Date: 20070707
  Serious: Yes (Hospitalization)
  Sender: FDA-Public Use
  Company Number: FRWYE426430JAN07

PATIENT
  Age: 56 Year
  Sex: Male

DRUGS (1)
  1. ENBREL [Suspect]
     Indication: RHEUMATOID ARTHRITIS
     Dosage: 2 DOSES TOTAL WEEKLY
     Route: 058
     Dates: start: 20060928, end: 20061113

REACTIONS (2)
  - GAIT DISTURBANCE [None]
  - PARAESTHESIA [None]
